FAERS Safety Report 11078975 (Version 2)
Quarter: 2015Q2

REPORT INFORMATION
  Report Type: Report from Study
  Country: US (occurrence: US)
  Receive Date: 20150430
  Receipt Date: 20150529
  Transmission Date: 20150821
  Serious: Yes (Other)
  Sender: FDA-Public Use
  Company Number: US-JNJFOC-20150418035

PATIENT
  Age: 62 Year
  Sex: Female
  Weight: 104.33 kg

DRUGS (4)
  1. INVOKANA [Suspect]
     Active Substance: CANAGLIFLOZIN
     Indication: DIABETES MELLITUS
     Route: 048
     Dates: start: 201502, end: 20150328
  2. INVOKANA [Suspect]
     Active Substance: CANAGLIFLOZIN
     Indication: DIABETES MELLITUS
     Route: 048
     Dates: start: 20150330, end: 20150420
  3. LEVEMIR [Concomitant]
     Active Substance: INSULIN DETEMIR
     Indication: DIABETES MELLITUS
     Route: 050
     Dates: start: 2006
  4. NOVOLOG [Concomitant]
     Active Substance: INSULIN ASPART
     Indication: DIABETES MELLITUS
     Route: 050
     Dates: start: 2006

REACTIONS (13)
  - Urethritis [Recovered/Resolved]
  - Confusional state [Recovering/Resolving]
  - Rash [Recovered/Resolved]
  - Urticaria [Recovered/Resolved]
  - Dry mouth [Recovered/Resolved]
  - Hyperhidrosis [Recovering/Resolving]
  - Dizziness [Recovering/Resolving]
  - Kidney infection [Recovered/Resolved]
  - Cystitis [Recovered/Resolved]
  - Drug ineffective [Unknown]
  - Asthenia [Recovering/Resolving]
  - Abasia [Unknown]
  - Fungal infection [Recovered/Resolved]

NARRATIVE: CASE EVENT DATE: 201502
